FAERS Safety Report 10685232 (Version 1)
Quarter: 2014Q4

REPORT INFORMATION
  Report Type: Spontaneous
  Country: US (occurrence: None)
  Receive Date: 20141217
  Receipt Date: 20141217
  Transmission Date: 20150529
  Serious: Yes (Other)
  Sender: FDA-Public Use
  Company Number: 20140422

PATIENT
  Age: 80 Year
  Sex: Female

DRUGS (1)
  1. VENOFER [Suspect]
     Active Substance: IRON SUCROSE
     Indication: IRON DEFICIENCY ANAEMIA
     Route: 041

REACTIONS (5)
  - Swelling [None]
  - Pain [None]
  - Skin discolouration [None]
  - Extravasation [None]
  - Wrong technique in drug usage process [None]
